FAERS Safety Report 9780610 (Version 2)
Quarter: 2014Q2

REPORT INFORMATION
  Report Type: Spontaneous
  Country: JP (occurrence: JP)
  Receive Date: 20131224
  Receipt Date: 20140408
  Transmission Date: 20141212
  Serious: Yes (Death)
  Sender: FDA-Public Use
  Company Number: JP-JNJFOC-20131214618

PATIENT
  Age: 83 Year
  Sex: Male

DRUGS (2)
  1. DUROTEP MT [Suspect]
     Indication: CANCER PAIN
     Route: 062
     Dates: start: 20130910
  2. ANPEC (MORPHINE HYDROCHLORIDE) [Suspect]
     Indication: CANCER PAIN
     Route: 054

REACTIONS (2)
  - Laryngeal cancer [Fatal]
  - Somnolence [Not Recovered/Not Resolved]
